FAERS Safety Report 5222778-X (Version None)
Quarter: 2007Q1

REPORT INFORMATION
  Report Type: 
  Country: None (occurrence: None)
  Receive Date: 20070129
  Receipt Date: 20070126
  Transmission Date: 20070707
  Serious: Yes (Hospitalization, Other)
  Sender: FDA-Public Use
  Company Number: US-GLAXOSMITHKLINE-A0631166A

PATIENT
  Age: 83 Year
  Sex: Male

DRUGS (11)
  1. VALTREX [Suspect]
     Dosage: 1G TWICE PER DAY
     Route: 048
     Dates: start: 20040611
  2. COUMADIN [Concomitant]
  3. FELODIPINE [Concomitant]
  4. AMIODARONE HCL [Concomitant]
  5. TRIAMCINOLONE DIACETATE [Concomitant]
     Route: 030
  6. CLARITIN [Concomitant]
  7. SORBITOL [Concomitant]
  8. LOTRIMIN [Concomitant]
  9. IRON [Concomitant]
  10. ASCORBIC ACID [Concomitant]
  11. FLUOROMETHOLONE [Concomitant]

REACTIONS (4)
  - ANOREXIA [None]
  - ASTHENIA [None]
  - RENAL FAILURE ACUTE [None]
  - WEIGHT DECREASED [None]
